FAERS Safety Report 5979233-9 (Version None)
Quarter: 2008Q4

REPORT INFORMATION
  Report Type: 
  Country: None (occurrence: None)
  Receive Date: 20081204
  Receipt Date: 20081124
  Transmission Date: 20090506
  Serious: Yes (Other)
  Sender: FDA-Public Use
  Company Number: CN-JNJFOC-20081106032

PATIENT
  Sex: Female

DRUGS (2)
  1. GYNO DAKTARIN [Suspect]
     Route: 067
  2. GYNO DAKTARIN [Suspect]
     Indication: VAGINAL INFECTION
     Route: 067

REACTIONS (1)
  - MELAENA [None]
